FAERS Safety Report 19690424 (Version 1)
Quarter: 2021Q3

REPORT INFORMATION
  Report Type: Spontaneous
  Country: US (occurrence: US)
  Receive Date: 20210811
  Receipt Date: 20210811
  Transmission Date: 20211014
  Serious: No
  Sender: FDA-Public Use
  Company Number: None

PATIENT
  Sex: Female

DRUGS (1)
  1. HUMIRA [Suspect]
     Active Substance: ADALIMUMAB
     Indication: JUVENILE IDIOPATHIC ARTHRITIS
     Route: 058

REACTIONS (7)
  - Infusion related reaction [None]
  - Fungal infection [None]
  - Alopecia areata [None]
  - Arthralgia [None]
  - Joint stiffness [None]
  - Pain [None]
  - Pyrexia [None]
